FAERS Safety Report 9140189 (Version 2)
Quarter: 2013Q3

REPORT INFORMATION
  Report Type: Spontaneous
  Country: BR (occurrence: BR)
  Receive Date: 20130305
  Receipt Date: 20130905
  Transmission Date: 20140515
  Serious: Yes (Hospitalization)
  Sender: FDA-Public Use
  Company Number: BR-ASTRAZENECA-2013SE13838

PATIENT
  Age: 86 Year
  Sex: Female
  Weight: 86 kg

DRUGS (16)
  1. ATACAND HCT [Suspect]
     Dosage: 8/12.5 MG, ONCE DAILY
     Route: 048
  2. SELOZOK [Suspect]
     Route: 048
  3. BRILINTA [Suspect]
     Route: 048
     Dates: start: 201212
  4. OMEPRAZOLE [Suspect]
     Indication: GASTRIC DISORDER
     Route: 048
  5. CAPTOPRIL [Concomitant]
     Route: 048
  6. GALVUS [Concomitant]
     Route: 048
  7. GLIFAGE [Concomitant]
     Indication: DIABETES MELLITUS
     Route: 048
  8. CITONEURIN [Concomitant]
     Route: 048
  9. FLAVONOID [Concomitant]
     Route: 048
  10. LIPIDIL [Concomitant]
     Route: 048
  11. GABANEURIN [Concomitant]
     Route: 048
  12. ATORVASTATIN [Concomitant]
     Route: 048
  13. SOMALGIN [Concomitant]
  14. CARDIO [Concomitant]
  15. LIPITOR [Concomitant]
  16. PANTOPRAZOLE [Concomitant]

REACTIONS (3)
  - Coronary artery occlusion [Recovered/Resolved]
  - Capillary fragility [Unknown]
  - Off label use [Not Recovered/Not Resolved]
